FAERS Safety Report 5824917-6 (Version None)
Quarter: 2008Q3

REPORT INFORMATION
  Report Type: 
  Country: None (occurrence: None)
  Receive Date: 20080728
  Receipt Date: 20080716
  Transmission Date: 20090109
  Serious: Yes (Other)
  Sender: FDA-Public Use
  Company Number: US-PFIZER INC-2006111220

PATIENT
  Sex: Male

DRUGS (1)
  1. DILANTIN SUSPENSION [Suspect]
     Indication: CONVULSION PROPHYLAXIS
     Route: 048

REACTIONS (14)
  - DRUG ERUPTION [None]
  - DRUG HYPERSENSITIVITY [None]
  - EAR HAEMORRHAGE [None]
  - EPISTAXIS [None]
  - HYPERSENSITIVITY [None]
  - MOUTH HAEMORRHAGE [None]
  - NAIL AVULSION [None]
  - PAIN IN EXTREMITY [None]
  - SCAR [None]
  - STEVENS-JOHNSON SYNDROME [None]
  - TENDERNESS [None]
  - TOOTH LOSS [None]
  - TOXIC EPIDERMAL NECROLYSIS [None]
  - VISUAL ACUITY REDUCED [None]
